FAERS Safety Report 16934372 (Version 1)
Quarter: 2019Q4

REPORT INFORMATION
  Report Type: Spontaneous
  Country: JP (occurrence: JP)
  Receive Date: 20191018
  Receipt Date: 20191018
  Transmission Date: 20200122
  Serious: Yes (Death, Hospitalization, Other)
  Sender: FDA-Public Use
  Company Number: JP-ELI_LILLY_AND_COMPANY-JP201909007481AA

PATIENT
  Sex: Male

DRUGS (17)
  1. CARBOPLATIN. [Concomitant]
     Active Substance: CARBOPLATIN
     Indication: NON-SMALL CELL LUNG CANCER STAGE IV
     Dosage: 500 MG, CYCLICAL
     Route: 041
     Dates: start: 20190423, end: 20190626
  2. METHYCOBAL [Concomitant]
     Active Substance: METHYLCOBALAMIN
     Dosage: 1000 UG
     Route: 030
     Dates: start: 20190417, end: 20190814
  3. CALONAL [Concomitant]
     Active Substance: ACETAMINOPHEN
     Dosage: 500 MG, TID
     Dates: start: 20190417, end: 20190821
  4. ALIMTA [Suspect]
     Active Substance: PEMETREXED DISODIUM
     Indication: NON-SMALL CELL LUNG CANCER STAGE IV
     Dosage: 800 MG, CYCLICAL
     Route: 041
     Dates: start: 20190423, end: 20190814
  5. ETIZOLAM [Concomitant]
     Active Substance: ETIZOLAM
     Indication: INSOMNIA
     Dosage: 0.5 MG, BID
     Dates: end: 20190821
  6. RUPAFIN [Concomitant]
     Active Substance: RUPATADINE FUMARATE
     Dosage: 10 MG, EACH MORNING
     Dates: start: 20190626, end: 20190821
  7. PANVITAN [ASCORBIC ACID;CALCIUM PANTOTHENATE; [Concomitant]
     Dosage: 1 G, EACH MORNING
     Dates: start: 20190418, end: 20190821
  8. KEYTRUDA [Suspect]
     Active Substance: PEMBROLIZUMAB
     Indication: NON-SMALL CELL LUNG CANCER STAGE IV
     Dosage: 200 MG, CYCLICAL
     Route: 041
     Dates: start: 20190423, end: 20190814
  9. MEDICON [DEXTROMETHORPHAN HYDROBROMIDE] [Concomitant]
     Active Substance: DEXTROMETHORPHAN HYDROBROMIDE
     Dosage: 15 MG, TID
     Dates: start: 20190405, end: 20190821
  10. CARBOCISTEINE [Concomitant]
     Active Substance: CARBOCYSTEINE
     Dosage: 500 MG, TID
     Dates: start: 20190405
  11. SPIOLTO RESPIMAT [Concomitant]
     Active Substance: OLODATEROL HYDROCHLORIDE\TIOTROPIUM BROMIDE MONOHYDRATE
     Indication: CHRONIC OBSTRUCTIVE PULMONARY DISEASE
  12. DECADRON [Concomitant]
     Active Substance: DEXAMETHASONE
     Indication: METASTASES TO CENTRAL NERVOUS SYSTEM
     Dosage: 0.5 MG, EACH MORNING
     Dates: start: 20190814, end: 20190821
  13. LYRICA [Concomitant]
     Active Substance: PREGABALIN
     Indication: NEURALGIA
     Dosage: 75 MG, EACH MORNING
     Dates: end: 20190821
  14. TRAZENTA [Concomitant]
     Active Substance: LINAGLIPTIN
     Indication: DIABETES MELLITUS
     Dosage: 5 MG, EACH MORNING
     Dates: end: 20190821
  15. PROPRANOLOL HYDROCHLORIDE. [Concomitant]
     Active Substance: PROPRANOLOL HYDROCHLORIDE
     Indication: HYPERTENSION
     Dosage: 10 MG, BID
     Dates: end: 20190821
  16. CODEINE [Concomitant]
     Active Substance: CODEINE
     Dosage: UNK
     Dates: start: 20190418, end: 20190821
  17. AMLODIPINE [Concomitant]
     Active Substance: AMLODIPINE BESYLATE
     Indication: HYPERTENSION
     Dosage: 2.5 MG, BID
     Dates: end: 20190821

REACTIONS (9)
  - Pneumonia [Fatal]
  - Respiratory failure [Unknown]
  - Malignant neoplasm progression [Fatal]
  - Dyspnoea [Unknown]
  - Pleural effusion [Unknown]
  - Malaise [Unknown]
  - Productive cough [Unknown]
  - Sputum retention [Unknown]
  - Interstitial lung disease [Fatal]

NARRATIVE: CASE EVENT DATE: 201908
